FAERS Safety Report 7415193-1 (Version None)
Quarter: 2011Q2

REPORT INFORMATION
  Report Type: 
  Country: None (occurrence: None)
  Receive Date: 20110414
  Receipt Date: 20110408
  Transmission Date: 20111010
  Serious: Yes (Hospitalization)
  Sender: FDA-Public Use
  Company Number: PHHY2011US23625

PATIENT
  Age: 68 Year
  Sex: Female

DRUGS (1)
  1. LOPRESSOR [Suspect]

REACTIONS (2)
  - WHEEZING [None]
  - ATRIAL FIBRILLATION [None]
